FAERS Safety Report 16690024 (Version 1)
Quarter: 2019Q3

REPORT INFORMATION
  Report Type: Spontaneous
  Country: US (occurrence: US)
  Receive Date: 20190809
  Receipt Date: 20190809
  Transmission Date: 20191004
  Serious: No
  Sender: FDA-Public Use
  Company Number: US-PERRIGO-19US003192

PATIENT
  Age: 64 Year
  Sex: Female
  Weight: 56.69 kg

DRUGS (1)
  1. MOTRIN IB [Suspect]
     Active Substance: IBUPROFEN
     Indication: BACK PAIN
     Dosage: 200 MG, TWICE (1 HOUR APART)
     Route: 048
     Dates: start: 201903, end: 201903

REACTIONS (1)
  - Pain [Unknown]

NARRATIVE: CASE EVENT DATE: 201903
